FAERS Safety Report 11315692 (Version 1)
Quarter: 2015Q3

REPORT INFORMATION
  Report Type: Spontaneous
  Country: PH (occurrence: PH)
  Receive Date: 20150728
  Receipt Date: 20150728
  Transmission Date: 20151125
  Serious: Yes (Death, Other)
  Sender: FDA-Public Use
  Company Number: PH-009507513-1507PHL011554

PATIENT
  Age: 59 Year
  Sex: Male

DRUGS (2)
  1. SOLOSA [Suspect]
     Active Substance: GLIMEPIRIDE
     Dosage: UNKNOWN
  2. JANUVIA [Suspect]
     Active Substance: SITAGLIPTIN PHOSPHATE
     Indication: DIABETES MELLITUS
     Dosage: 100 MG(1 TABLET), QD (ONCE A DAY)
     Route: 048

REACTIONS (1)
  - Myocardial infarction [Fatal]

NARRATIVE: CASE EVENT DATE: 20150513
